FAERS Safety Report 17860229 (Version 1)
Quarter: 2020Q2

REPORT INFORMATION
  Report Type: Spontaneous
  Country: ES (occurrence: ES)
  Receive Date: 20200604
  Receipt Date: 20200604
  Transmission Date: 20200714
  Serious: Yes (Other)
  Sender: FDA-Public Use
  Company Number: ES-PFIZER INC-2020216536

PATIENT
  Age: 50 Year
  Sex: Female

DRUGS (9)
  1. METHYLPREDNISOLONE. [Concomitant]
     Active Substance: METHYLPREDNISOLONE
     Indication: THYROIDITIS
     Dosage: 2 MG/KG
  2. METAMIZOLE/PARACETAMOL [Concomitant]
     Indication: PAIN
     Dosage: UNK
     Dates: start: 2017
  3. CISPLATIN. [Suspect]
     Active Substance: CISPLATIN
     Indication: ADENOCARCINOMA OF THE CERVIX
     Dosage: 40 MG/M2, WEEKLY, 6 CYCLES
  4. NIVOLUMAB [Suspect]
     Active Substance: NIVOLUMAB
     Indication: ADENOCARCINOMA OF THE CERVIX
     Dosage: 1 MG/KG, CYCLIC
     Dates: start: 201703
  5. NIVOLUMAB [Suspect]
     Active Substance: NIVOLUMAB
     Dosage: 240 MG (EVERY 2 WEEKS)
     Dates: start: 201703
  6. PACLITAXEL. [Suspect]
     Active Substance: PACLITAXEL
     Indication: ADENOCARCINOMA OF THE CERVIX
     Dosage: 60 MG/M2, CYCLIC
     Dates: start: 201605
  7. CARBOPLATIN. [Suspect]
     Active Substance: CARBOPLATIN
     Indication: ADENOCARCINOMA OF THE CERVIX
     Dosage: UNK, CYCLIC (AUC 1.5)
     Dates: start: 201605
  8. METHYLPREDNISOLONE. [Concomitant]
     Active Substance: METHYLPREDNISOLONE
     Dosage: 2 MG/KG, DAILY
     Dates: start: 2017
  9. IPILIMUMAB [Suspect]
     Active Substance: IPILIMUMAB
     Indication: ADENOCARCINOMA OF THE CERVIX
     Dosage: 3 MG/KG, EVERY 3 WEEKS (FOR FOUR DOSES) (CYCLIC)
     Dates: start: 201703

REACTIONS (1)
  - Colitis microscopic [Recovered/Resolved]
